FAERS Safety Report 7369176-0 (Version None)
Quarter: 2011Q1

REPORT INFORMATION
  Report Type: 
  Country: None (occurrence: None)
  Receive Date: 20110323
  Receipt Date: 20110318
  Transmission Date: 20110831
  Serious: No
  Sender: FDA-Public Use
  Company Number: US-PFIZER INC-2011011152

PATIENT
  Sex: Female
  Weight: 31.746 kg

DRUGS (2)
  1. AZITHROMYCIN [Suspect]
     Indication: PYREXIA
     Dosage: 7.5 ML, DAILY
     Route: 048
     Dates: start: 20110112, end: 20110114
  2. AZITHROMYCIN [Suspect]
     Indication: COUGH

REACTIONS (3)
  - VOMITING [None]
  - ARTHRALGIA [None]
  - PAIN IN EXTREMITY [None]
